FAERS Safety Report 6659522-5 (Version None)
Quarter: 2010Q1

REPORT INFORMATION
  Report Type: 
  Country: None (occurrence: None)
  Receive Date: 20100330
  Receipt Date: 20100313
  Transmission Date: 20100710
  Serious: Yes (Other)
  Sender: FDA-Public Use
  Company Number: US-JNJFOC-20090707135

PATIENT
  Sex: Male

DRUGS (3)
  1. LEVAQUIN [Suspect]
     Indication: RESPIRATORY TRACT CONGESTION
     Route: 065
  2. LEVAQUIN [Suspect]
     Indication: EAR INFECTION
     Route: 065
  3. LEVAQUIN [Suspect]
     Indication: INFECTION
     Route: 065

REACTIONS (3)
  - LIGAMENT INJURY [None]
  - MENISCUS LESION [None]
  - TENDON RUPTURE [None]
